FAERS Safety Report 15357109 (Version 1)
Quarter: 2018Q3

REPORT INFORMATION
  Report Type: Spontaneous
  Country: US (occurrence: US)
  Receive Date: 20180906
  Receipt Date: 20180906
  Transmission Date: 20181010
  Serious: Yes (Other)
  Sender: FDA-Public Use
  Company Number: US-PFIZER INC-2018357746

PATIENT
  Age: 5 Month
  Sex: Female

DRUGS (1)
  1. VANCOMYCIN HCL [Suspect]
     Active Substance: VANCOMYCIN HYDROCHLORIDE
     Dosage: UNK
     Route: 048

REACTIONS (4)
  - Clostridium difficile colitis [Unknown]
  - Drug ineffective [Unknown]
  - Klebsiella sepsis [Unknown]
  - Staphylococcal infection [Unknown]
